FAERS Safety Report 21046840 (Version 1)
Quarter: 2022Q3

REPORT INFORMATION
  Report Type: Spontaneous
  Country: FR (occurrence: FR)
  Receive Date: 20220706
  Receipt Date: 20220706
  Transmission Date: 20221027
  Serious: Yes (Other)
  Sender: FDA-Public Use
  Company Number: FR-PFM-2022-05074

PATIENT
  Age: 66 Year
  Sex: Female

DRUGS (7)
  1. VINORELBINE [Suspect]
     Active Substance: VINORELBINE TARTRATE
     Indication: Breast cancer
     Dosage: UNK UNK, CYCLE (2 CYCLES D1- D6),RECEIVED ON DAYS 1 TO 6
     Route: 042
  2. FLUOROURACIL [Suspect]
     Active Substance: FLUOROURACIL
     Indication: Breast cancer
     Dosage: UNK, CYCLE (2 CYCLES OF 5 DAYS)
     Route: 042
  3. FLUOROURACIL [Suspect]
     Active Substance: FLUOROURACIL
     Dosage: UNK, CYCLE RECEIVED 2 CYCLES OF FLUOROURACIL CHEMOTHERAPY WITH RADIATION THERAPY
     Route: 042
  4. EPIRUBICIN [Suspect]
     Active Substance: EPIRUBICIN
     Indication: Invasive ductal breast carcinoma
     Dosage: UNK, CYCLE RECEIVED 4 COURSES OF EPIRUBICIN
     Route: 065
  5. FLUOROURACIL [Suspect]
     Active Substance: FLUOROURACIL
     Indication: Invasive ductal breast carcinoma
     Dosage: UNK, CYCLE RECEIVED 4 COURSES OF FLUOROURACIL
     Route: 065
  6. CYCLOPHOSPHAMIDE [Suspect]
     Active Substance: CYCLOPHOSPHAMIDE
     Indication: Invasive ductal breast carcinoma
     Dosage: UNK UNK, CYCLE RECEIVED 4 COURSES OF CYCLOPHOSPHAMIDE
     Route: 065
  7. HYDROXYCHLOROQUINE [Suspect]
     Active Substance: HYDROXYCHLOROQUINE
     Indication: Cutaneous lupus erythematosus
     Dosage: UNK
     Route: 065

REACTIONS (5)
  - Cutaneous lupus erythematosus [Recovered/Resolved]
  - Skin toxicity [Unknown]
  - Condition aggravated [Recovering/Resolving]
  - Atrophy [Unknown]
  - Telangiectasia [Unknown]
